FAERS Safety Report 21584015 (Version 2)
Quarter: 2022Q4

REPORT INFORMATION
  Report Type: Report from Study
  Country: LB (occurrence: LB)
  Receive Date: 20221111
  Receipt Date: 20221205
  Transmission Date: 20230113
  Serious: Yes (Other)
  Sender: FDA-Public Use
  Company Number: LB-002147023-NVSC2022LB252227

PATIENT
  Age: 54 Year
  Sex: Female
  Weight: 60 kg

DRUGS (2)
  1. TASIGNA [Suspect]
     Active Substance: NILOTINIB
     Indication: Chronic myeloid leukaemia
     Dosage: 200 MG (200 MG 2 TABS BID)
     Route: 048
     Dates: start: 202109, end: 202209
  2. EUTHYROX [Concomitant]
     Active Substance: LEVOTHYROXINE SODIUM
     Indication: Product used for unknown indication
     Dosage: UNK
     Route: 065

REACTIONS (1)
  - Muscle rupture [Recovered/Resolved]

NARRATIVE: CASE EVENT DATE: 20220801
